FAERS Safety Report 6998788-9 (Version None)
Quarter: 2010Q3

REPORT INFORMATION
  Report Type: 
  Country: None (occurrence: None)
  Receive Date: 20100920
  Receipt Date: 20100118
  Transmission Date: 20110219
  Serious: Yes (Other)
  Sender: FDA-Public Use
  Company Number: US-ASTRAZENECA-2010SE02428

PATIENT
  Age: 66 Year
  Sex: Female
  Weight: 64.4 kg

DRUGS (16)
  1. SEROQUEL [Suspect]
     Indication: DEPRESSION
     Route: 048
     Dates: end: 20090801
  2. CYMBALTA [Concomitant]
     Indication: DEPRESSION
     Route: 048
  3. DILTIAZEM [Concomitant]
     Indication: CARDIAC DISORDER
     Route: 048
  4. CALCIUM PLUS VITAMIN D [Concomitant]
     Indication: VITAMIN SUPPLEMENTATION
     Dosage: DAILY
  5. CELEBREX [Concomitant]
     Indication: ARTHRITIS
     Route: 048
  6. DIOVAN [Concomitant]
     Indication: BLOOD CHOLESTEROL
     Route: 048
  7. LISINOPRIL [Concomitant]
     Indication: BLOOD PRESSURE INCREASED
     Route: 048
  8. METFORMIN [Concomitant]
     Indication: DIABETES MELLITUS
     Route: 048
  9. NITROGLYCERIN [Concomitant]
     Indication: CARDIAC DISORDER
     Dosage: PRN
     Route: 048
  10. VITAMIN AND MINERAL PRENATAL SUPPLEMENT W/ FOLIC ACID CAP [Concomitant]
     Indication: ANAEMIA
     Dosage: DAILY
     Route: 048
  11. SIMVASTATIN [Concomitant]
     Indication: HYPERTENSION
     Route: 048
  12. TESSALON [Concomitant]
     Indication: LUNG DISORDER
     Route: 048
  13. ZANAFLEX [Concomitant]
     Route: 048
  14. PERCOCET [Concomitant]
     Indication: PAIN
     Dosage: PRN
  15. LORATADINE [Concomitant]
  16. OSTEORENEW [Concomitant]

REACTIONS (1)
  - TYPE 2 DIABETES MELLITUS [None]
